FAERS Safety Report 18193821 (Version 1)
Quarter: 2020Q3

REPORT INFORMATION
  Report Type: Spontaneous
  Country: US (occurrence: US)
  Receive Date: 20200825
  Receipt Date: 20200825
  Transmission Date: 20201103
  Serious: Yes (Hospitalization)
  Sender: FDA-Public Use
  Company Number: US-SPECGX-T202001385

PATIENT
  Sex: Male
  Weight: 75 kg

DRUGS (2)
  1. FENTANYL TRANSDERMAL SYSTEM [Suspect]
     Active Substance: FENTANYL
     Indication: NEURALGIA
     Dosage: UNK, EVERY 72 HOURS
     Route: 062
  2. FENTANYL TRANSDERMAL SYSTEM [Suspect]
     Active Substance: FENTANYL
     Dosage: UNK, EVERY 72 HOURS
     Route: 062

REACTIONS (6)
  - Anxiety [Unknown]
  - Reading disorder [Unknown]
  - Dysphemia [Not Recovered/Not Resolved]
  - Feeling abnormal [Unknown]
  - Product adhesion issue [Recovered/Resolved]
  - Pneumonia [Unknown]
